FAERS Safety Report 21680240 (Version 1)
Quarter: 2022Q4

REPORT INFORMATION
  Report Type: Report from Study
  Country: US (occurrence: US)
  Receive Date: 20221205
  Receipt Date: 20221205
  Transmission Date: 20230113
  Serious: No
  Sender: FDA-Public Use
  Company Number: US-ABBVIE-4191369

PATIENT
  Sex: Female

DRUGS (1)
  1. HUMIRA [Suspect]
     Active Substance: ADALIMUMAB
     Indication: Rheumatoid arthritis
     Route: 058
     Dates: start: 20190522

REACTIONS (4)
  - Balance disorder [Unknown]
  - Hernia pain [Not Recovered/Not Resolved]
  - Fall [Unknown]
  - Injury [Unknown]

NARRATIVE: CASE EVENT DATE: 20221001
